FAERS Safety Report 4740789-5 (Version None)
Quarter: 2005Q3

REPORT INFORMATION
  Report Type: 
  Country: None (occurrence: None)
  Receive Date: 20050729
  Receipt Date: 20050310
  Transmission Date: 20060218
  Serious: Yes (Hospitalization)
  Sender: FDA-Public Use
  Company Number: US-2005-003480

PATIENT
  Age: 40 Year
  Sex: Female
  Weight: 54.4 kg

DRUGS (3)
  1. MAGNEVIST INJECTION (GADOPE DIMEGLUMINE) INJECTION [Suspect]
     Indication: NUCLEAR MAGNETIC RESONANCE IMAGING
     Dosage: 11 ML, 1 DOSE, INTRAVENOUS
     Route: 042
     Dates: start: 20050309, end: 20050309
  2. MAGNEVIST INJECTION (GADOPE DIMEGLUMINE) INJECTION [Suspect]
     Indication: NUCLEAR MAGNETIC RESONANCE IMAGING BRAIN
     Dosage: 11 ML, 1 DOSE, INTRAVENOUS
     Route: 042
     Dates: start: 20050309, end: 20050309
  3. ASPIRIN [Concomitant]

REACTIONS (3)
  - DYSPHONIA [None]
  - DYSPNOEA [None]
  - RASH [None]
